FAERS Safety Report 8125771-2 (Version None)
Quarter: 2012Q1

REPORT INFORMATION
  Report Type: 
  Country: None (occurrence: None)
  Receive Date: 20120209
  Receipt Date: 20120209
  Transmission Date: 20120608
  Serious: Yes (Other)
  Sender: FDA-Public Use
  Company Number: US-BAYER-2012-012999

PATIENT
  Age: 41 Year
  Sex: Male

DRUGS (1)
  1. BETASERON [Suspect]
     Indication: MULTIPLE SCLEROSIS
     Dosage: 8 MIU, QOD
     Route: 058
     Dates: start: 20110908

REACTIONS (6)
  - TREMOR [None]
  - MOBILITY DECREASED [None]
  - LOWER EXTREMITY MASS [None]
  - BALANCE DISORDER [None]
  - FALL [None]
  - SECRETION DISCHARGE [None]
